FAERS Safety Report 4993954-6 (Version None)
Quarter: 2006Q2

REPORT INFORMATION
  Report Type: 
  Country: None (occurrence: None)
  Receive Date: 20060505
  Receipt Date: 20060118
  Transmission Date: 20061013
  Serious: Yes (Life-Threatening)
  Sender: FDA-Public Use
  Company Number: JP-JPN-A200600248

PATIENT
  Age: 33 Year
  Sex: Female

DRUGS (5)
  1. FLOLAN [Suspect]
     Indication: PULMONARY HYPERTENSION
     Route: 042
     Dates: start: 20001224
  2. WARFARIN [Suspect]
     Indication: PULMONARY HYPERTENSION
     Dosage: 3.5MG PER DAY
     Route: 048
     Dates: end: 20030303
  3. FUROSEMIDE [Concomitant]
     Route: 065
  4. SPIRONOLACTONE [Concomitant]
     Route: 048
  5. TORSEMIDE [Concomitant]
     Route: 048

REACTIONS (8)
  - BLOOD FIBRINOGEN INCREASED [None]
  - CARDIAC FAILURE [None]
  - COUGH [None]
  - HAEMATEMESIS [None]
  - HAEMOPTYSIS [None]
  - PROTHROMBIN TIME SHORTENED [None]
  - PULMONARY ALVEOLAR HAEMORRHAGE [None]
  - SPUTUM DISCOLOURED [None]
